FAERS Safety Report 10168459 (Version 1)
Quarter: 2014Q2

REPORT INFORMATION
  Report Type: Report from Study
  Country: US (occurrence: US)
  Receive Date: 20140513
  Receipt Date: 20140513
  Transmission Date: 20141212
  Serious: No
  Sender: FDA-Public Use
  Company Number: US-ALEXION-A201002164

PATIENT
  Sex: Male

DRUGS (2)
  1. SOLIRIS [Suspect]
     Indication: PAROXYSMAL NOCTURNAL HAEMOGLOBINURIA
     Dosage: 1200 MG, Q10 DAYS
     Route: 042
  2. SOLIRIS [Suspect]
     Dosage: 1200 MG, Q2W
     Route: 042

REACTIONS (4)
  - Dysphonia [Recovering/Resolving]
  - Face oedema [Recovering/Resolving]
  - Inappropriate schedule of drug administration [Recovered/Resolved]
  - Joint swelling [Recovering/Resolving]
